FAERS Safety Report 8288841-4 (Version None)
Quarter: 2012Q2

REPORT INFORMATION
  Report Type: 
  Country: None (occurrence: None)
  Receive Date: 20120417
  Receipt Date: 20120330
  Transmission Date: 20120825
  Serious: No
  Sender: FDA-Public Use
  Company Number: US-BIOGENIDEC-2012BI011304

PATIENT
  Sex: Female

DRUGS (1)
  1. AVONEX [Suspect]
     Indication: MULTIPLE SCLEROSIS
     Route: 030
     Dates: start: 19960822

REACTIONS (5)
  - HEPATIC ENZYME INCREASED [None]
  - MUSCLE SPASMS [None]
  - VERTIGO [None]
  - MULTIPLE SCLEROSIS RELAPSE [None]
  - FATIGUE [None]
